FAERS Safety Report 10264200 (Version 1)
Quarter: 2014Q2

REPORT INFORMATION
  Report Type: Report from Study
  Country: US (occurrence: US)
  Receive Date: 20140627
  Receipt Date: 20140627
  Transmission Date: 20141212
  Serious: Yes (Other)
  Sender: FDA-Public Use
  Company Number: US-ROCHE-1425265

PATIENT
  Age: 66 Year
  Sex: Male

DRUGS (4)
  1. PEG-INTERFERON ALFA 2A [Suspect]
     Indication: CHRONIC HEPATITIS C
     Route: 065
  2. RIBAVIRIN [Suspect]
     Indication: CHRONIC HEPATITIS C
     Route: 065
  3. RIBAVIRIN [Suspect]
     Dosage: DOSE REDUCED
     Route: 065
  4. TELAPREVIR [Suspect]
     Indication: CHRONIC HEPATITIS C
     Route: 065

REACTIONS (4)
  - Hepatitis C [Unknown]
  - Drug resistance [Unknown]
  - Viral mutation identified [Unknown]
  - Blood disorder [Unknown]
